FAERS Safety Report 5225829-1 (Version None)
Quarter: 2007Q1

REPORT INFORMATION
  Report Type: 
  Country: None (occurrence: None)
  Receive Date: 20070130
  Receipt Date: 20070130
  Transmission Date: 20070707
  Serious: Yes (Life-Threatening, Hospitalization, Other)
  Sender: FDA-Public Use
  Company Number: None

PATIENT
  Sex: Female
  Weight: 70.3075 kg

DRUGS (6)
  1. SEROQUEL [Suspect]
     Indication: BIPOLAR I DISORDER
     Dosage: 200 MG UP TO 600 MG 1X PER DAY PO
     Route: 048
     Dates: start: 19970401, end: 20050501
  2. SEROQUEL [Suspect]
     Indication: POST-TRAUMATIC STRESS DISORDER
     Dosage: 200 MG UP TO 600 MG 1X PER DAY PO
     Route: 048
     Dates: start: 19970401, end: 20050501
  3. RISPERDAL [Suspect]
     Indication: BORDERLINE PERSONALITY DISORDER
     Dosage: 50 TO 100 MG 2X PER DAY PO
     Route: 048
  4. SSRI'S [Concomitant]
  5. TRICYCLIC ANTIDEPRESSANTS [Concomitant]
  6. ATIVAN [Concomitant]

REACTIONS (13)
  - BLOOD GLUCOSE FLUCTUATION [None]
  - CEREBROVASCULAR ACCIDENT [None]
  - DIABETES MELLITUS NON-INSULIN-DEPENDENT [None]
  - DRUG INEFFECTIVE [None]
  - ERUCTATION [None]
  - FLATULENCE [None]
  - HALLUCINATION [None]
  - IMPAIRED GASTRIC EMPTYING [None]
  - MYOCARDIAL INFARCTION [None]
  - NEUROPATHY [None]
  - STRESS [None]
  - SUICIDAL IDEATION [None]
  - WEIGHT INCREASED [None]
